FAERS Safety Report 7154885 (Version 2)
Quarter: 2014Q3

REPORT INFORMATION
  Report Type: Spontaneous
  Country: US (occurrence: None)
  Receive Date: 20091008
  Receipt Date: 20140925
  Transmission Date: 20150326
  Serious: Yes (Hospitalization)
  Sender: FDA-Public Use
  Company Number: 2009S1007508

PATIENT
  Age: 43 Year
  Sex: Male
  Weight: 82.3 kg

DRUGS (5)
  1. CAPTOPRIL. [Concomitant]
     Active Substance: CAPTOPRIL
  2. PHOSPHO-SODA [Suspect]
     Active Substance: SODIUM PHOSPHATE, DIBASIC\SODIUM PHOSPHATE, MONOBASIC
     Indication: COLONOSCOPY
     Dosage: PO
     Route: 048
     Dates: start: 20000106
  3. HYTRIN (TERAZOSIN HYDROCHLORIDE) [Concomitant]
  4. COMTREX (PARACETAMOL, CHLORPHENAMINE MALEATE, DEXTROMETHORPHAN HYDROBROMIDE, PHENYLPROPANOLAMINE HYDROCHLORIDE) [Concomitant]
  5. INSULIN [Concomitant]
     Active Substance: INSULIN NOS

REACTIONS (14)
  - Pancreas transplant [None]
  - Acute phosphate nephropathy [None]
  - Diarrhoea [None]
  - Dialysis [None]
  - Haemorrhoids [None]
  - Hyperglycaemia [None]
  - Diabetic nephropathy [None]
  - Nephropathy toxic [None]
  - Gastroenteritis [None]
  - Dehydration [None]
  - Colon adenoma [None]
  - Renal failure acute [None]
  - Renal transplant [None]
  - Rhinorrhoea [None]
